FAERS Safety Report 19745533 (Version 3)
Quarter: 2021Q3

REPORT INFORMATION
  Report Type: Spontaneous
  Country: PL (occurrence: PL)
  Receive Date: 20210825
  Receipt Date: 20210920
  Transmission Date: 20211014
  Serious: Yes (Life-Threatening, Other)
  Sender: FDA-Public Use
  Company Number: PL-PFIZER INC-202101084066

PATIENT
  Sex: Female

DRUGS (3)
  1. ZESSLY [Suspect]
     Active Substance: INFLIXIMAB
     Indication: CROHN^S DISEASE
     Dosage: 100 MG
     Route: 065
     Dates: start: 20210513
  2. INNOFER BABY [Concomitant]
     Dosage: UNK (2 X 3 ML)
     Route: 048
  3. ZESSLY [Suspect]
     Active Substance: INFLIXIMAB
     Dosage: 100 MG
     Route: 065
     Dates: start: 20210630

REACTIONS (5)
  - Vomiting [Recovered/Resolved]
  - Hypotension [Recovered/Resolved]
  - Cyanosis [Recovered/Resolved]
  - Shock [Unknown]
  - Dyspnoea [Recovered/Resolved]

NARRATIVE: CASE EVENT DATE: 20210630
